FAERS Safety Report 17093552 (Version 1)
Quarter: 2019Q4

REPORT INFORMATION
  Report Type: Spontaneous
  Country: US (occurrence: US)
  Receive Date: 20191129
  Receipt Date: 20191129
  Transmission Date: 20200122
  Serious: Yes (Disabling, Other)
  Sender: FDA-Public Use
  Company Number: US-VISTAPHARM, INC.-VER201911-001360

PATIENT
  Age: 23 Year
  Sex: Male

DRUGS (2)
  1. METHADONE [Suspect]
     Active Substance: METHADONE HYDROCHLORIDE
     Indication: SUBSTANCE ABUSE
     Dosage: 30 MG PER DAY FOR 5 DAYS
  2. METHADONE [Suspect]
     Active Substance: METHADONE HYDROCHLORIDE
     Dosage: 90 MG (ON THE SIXTH DAY)

REACTIONS (2)
  - Deafness neurosensory [Unknown]
  - Respiratory arrest [Unknown]
